FAERS Safety Report 20345938 (Version 1)
Quarter: 2022Q1

REPORT INFORMATION
  Report Type: Spontaneous
  Country: JP (occurrence: JP)
  Receive Date: 20220118
  Receipt Date: 20220118
  Transmission Date: 20220423
  Serious: Yes (Other)
  Sender: FDA-Public Use
  Company Number: JP-PFIZER INC-202200022322

PATIENT

DRUGS (3)
  1. INLYTA [Suspect]
     Active Substance: AXITINIB
     Dosage: 4 MG, 21 DAYS
  2. INLYTA [Suspect]
     Active Substance: AXITINIB
     Dosage: 8 MG, CYCLIC (SCHEDULE OF 5 DAYS OF ADMINISTRATION AND 2 DAYS OF WITHDRAWAL)
  3. BAVENCIO [Concomitant]
     Active Substance: AVELUMAB
     Dosage: UNK

REACTIONS (3)
  - Haematochezia [Unknown]
  - Rash [Unknown]
  - Off label use [Unknown]
